FAERS Safety Report 21702293 (Version 1)
Quarter: 2022Q4

REPORT INFORMATION
  Report Type: Report from Study
  Country: US (occurrence: US)
  Receive Date: 20221208
  Receipt Date: 20221208
  Transmission Date: 20230113
  Serious: Yes (Other)
  Sender: FDA-Public Use
  Company Number: US-ABBVIE-4225888

PATIENT
  Sex: Female

DRUGS (4)
  1. HUMIRA [Suspect]
     Active Substance: ADALIMUMAB
     Indication: COVID-19 prophylaxis
     Route: 058
     Dates: start: 2010
  2. HUMIRA [Suspect]
     Active Substance: ADALIMUMAB
     Indication: Generalised anxiety disorder
  3. HUMIRA [Suspect]
     Active Substance: ADALIMUMAB
     Indication: Neoplasm prophylaxis
  4. HUMIRA [Suspect]
     Active Substance: ADALIMUMAB
     Indication: Psoriasis

REACTIONS (7)
  - Malignant melanoma [Unknown]
  - Stress [Unknown]
  - Crohn^s disease [Unknown]
  - Generalised anxiety disorder [Unknown]
  - Eye disorder [Unknown]
  - COVID-19 [Unknown]
  - Depression [Unknown]

NARRATIVE: CASE EVENT DATE: 20210101
